FAERS Safety Report 13715923 (Version 1)
Quarter: 2017Q3

REPORT INFORMATION
  Report Type: Spontaneous
  Country: US (occurrence: US)
  Receive Date: 20170705
  Receipt Date: 20170705
  Transmission Date: 20171127
  Serious: No
  Sender: FDA-Public Use
  Company Number: US-BRISTOL-MYERS SQUIBB COMPANY-BMS-2017-059468

PATIENT
  Sex: Male
  Weight: 153 kg

DRUGS (1)
  1. OPDIVO [Suspect]
     Active Substance: NIVOLUMAB
     Indication: GASTROINTESTINAL STROMAL TUMOUR
     Route: 065

REACTIONS (9)
  - Malaise [Unknown]
  - Diarrhoea [Unknown]
  - Fatigue [Unknown]
  - Gait disturbance [Unknown]
  - Decreased appetite [Unknown]
  - Product use in unapproved indication [Unknown]
  - Gastroenteritis viral [Unknown]
  - Drug dose omission [Unknown]
  - Weight decreased [Unknown]
